FAERS Safety Report 10877519 (Version 1)
Quarter: 2015Q1

REPORT INFORMATION
  Report Type: Spontaneous
  Country: CA (occurrence: CA)
  Receive Date: 20150302
  Receipt Date: 20150302
  Transmission Date: 20150721
  Serious: Yes (Other)
  Sender: FDA-Public Use
  Company Number: CA-SHIRE-CA201501470

PATIENT
  Age: 15 Year
  Sex: Male

DRUGS (2)
  1. INTUNIV [Suspect]
     Active Substance: GUANFACINE HYDROCHLORIDE
     Indication: ATTENTION DEFICIT/HYPERACTIVITY DISORDER
  2. INTUNIV [Suspect]
     Active Substance: GUANFACINE HYDROCHLORIDE
     Indication: AUTISM
     Dosage: 1 MG, UNKNOWN
     Route: 048

REACTIONS (5)
  - Abasia [Unknown]
  - Crying [Unknown]
  - Somnolence [Unknown]
  - Hypokinesia [Unknown]
  - Chest pain [Unknown]
